FAERS Safety Report 8425012-2 (Version None)
Quarter: 2012Q2

REPORT INFORMATION
  Report Type: 
  Country: None (occurrence: None)
  Receive Date: 20120605
  Receipt Date: 20120605
  Transmission Date: 20120825
  Serious: Yes (Hospitalization)
  Sender: FDA-Public Use
  Company Number: None

PATIENT
  Age: 6 Year
  Sex: Female
  Weight: 30 kg

DRUGS (1)
  1. KETAMINE HYDROCHLORIDE [Suspect]
     Indication: JOINT DISLOCATION
     Dates: start: 20120426

REACTIONS (3)
  - DRUG LABEL CONFUSION [None]
  - SEDATION [None]
  - INCORRECT DOSE ADMINISTERED [None]
